FAERS Safety Report 20356784 (Version 2)
Quarter: 2022Q1

REPORT INFORMATION
  Report Type: Spontaneous
  Country: US (occurrence: US)
  Receive Date: 20220120
  Receipt Date: 20220207
  Transmission Date: 20220423
  Serious: Yes (Hospitalization)
  Sender: FDA-Public Use
  Company Number: US-TEVA-2022-US-1999091

PATIENT
  Age: 53 Year
  Sex: Male

DRUGS (1)
  1. WARFARIN [Suspect]
     Active Substance: WARFARIN
     Indication: Anticoagulant therapy
     Route: 065

REACTIONS (5)
  - Haematoma muscle [Recovering/Resolving]
  - Nerve compression [Recovering/Resolving]
  - Neuropathy peripheral [Recovering/Resolving]
  - Allodynia [Recovering/Resolving]
  - Sensory loss [Recovering/Resolving]
